FAERS Safety Report 6545960-8 (Version None)
Quarter: 2010Q1

REPORT INFORMATION
  Report Type: 
  Country: None (occurrence: None)
  Receive Date: 20100121
  Receipt Date: 20100121
  Transmission Date: 20100710
  Serious: Yes (Other)
  Sender: FDA-Public Use
  Company Number: None

PATIENT
  Age: 48 Year
  Sex: Female
  Weight: 81.1 kg

DRUGS (4)
  1. CETUXIMAB [Suspect]
     Indication: BREAST CANCER
     Dosage: 150MG/M2 WEEKLY IV
     Route: 042
     Dates: start: 20060728, end: 20091231
  2. LASIX [Concomitant]
  3. PAXIL [Concomitant]
  4. POTASSIUM CHLORIDE [Concomitant]

REACTIONS (4)
  - FLUID RETENTION [None]
  - OEDEMA PERIPHERAL [None]
  - PAIN IN EXTREMITY [None]
  - WEIGHT INCREASED [None]
